FAERS Safety Report 18375491 (Version 1)
Quarter: 2020Q4

REPORT INFORMATION
  Report Type: Spontaneous
  Country: US (occurrence: US)
  Receive Date: 20201011
  Receipt Date: 20201011
  Transmission Date: 20210114
  Serious: Yes (Other)
  Sender: FDA-Public Use
  Company Number: None

PATIENT
  Age: 72 Year
  Sex: Male
  Weight: 131 kg

DRUGS (21)
  1. JARDIANCE 25MG DAILY [Concomitant]
  2. MULTIVITAMIN DAILY [Concomitant]
  3. TRULICITY [Suspect]
     Active Substance: DULAGLUTIDE
  4. TRULICITY 1.5MG WEEKLY [Concomitant]
  5. FENOFIBRATE 160MG DAILY [Concomitant]
  6. TUMERIC 500MG TWICE DAILY [Concomitant]
  7. ASPIRIN 81MG [Concomitant]
     Active Substance: ASPIRIN
  8. HYDROCHLOROTHIAZIDE 25MG DAILY [Concomitant]
  9. MELATONIN 10MG DAILY [Concomitant]
  10. GABAPENTIN 300MG DAILY [Concomitant]
  11. METFORMIN 1000MG TWICE DAILY [Concomitant]
  12. QUINAPN?L 40MG DAILY [Concomitant]
  13. VOLTAREN 1% TOPICAL GEL [Concomitant]
  14. DIPHENHYDRAMINE 25MG TABLET [Concomitant]
  15. FISH OIL 2400MG DAILY [Concomitant]
  16. LEVOTHYROXINE 137 MCG DAILY [Concomitant]
  17. MAGNESIUM OXIDE 420MG DAILY [Concomitant]
  18. IPRATROPIUM NASAL [Concomitant]
  19. VITAMINE DS 1000 UNITS [Concomitant]
  20. GLIMEPIN^DE 1MG DAILY [Concomitant]
  21. VITAMIN E 400 UNITS DAILY [Concomitant]

REACTIONS (1)
  - Pancreatitis [None]

NARRATIVE: CASE EVENT DATE: 20200611
